FAERS Safety Report 16230587 (Version 3)
Quarter: 2019Q3

REPORT INFORMATION
  Report Type: Spontaneous
  Country: JP (occurrence: JP)
  Receive Date: 20190423
  Receipt Date: 20190715
  Transmission Date: 20191004
  Serious: Yes (Hospitalization, Other)
  Sender: FDA-Public Use
  Company Number: JP-009507513-1903JPN002937J

PATIENT
  Age: 80 Year
  Sex: Male

DRUGS (4)
  1. IMMUNOBLADDER INTRAVESICAL [Concomitant]
     Indication: BLADDER CANCER
     Dosage: UNK
     Route: 061
  2. KEYTRUDA [Suspect]
     Active Substance: PEMBROLIZUMAB
     Indication: NON-SMALL CELL LUNG CANCER
     Dosage: 200 MILLIGRAM, Q3W
     Route: 041
     Dates: start: 20180803
  3. KEYTRUDA [Suspect]
     Active Substance: PEMBROLIZUMAB
     Dosage: 200 MILLIGRAM, Q3W
     Route: 041
  4. LOXONIN [Concomitant]
     Active Substance: LOXOPROFEN SODIUM
     Indication: ANALGESIC THERAPY
     Dosage: UNK
     Route: 048

REACTIONS (6)
  - Compression fracture [Unknown]
  - Interstitial lung disease [Unknown]
  - Malignant neoplasm progression [Unknown]
  - Bladder cancer stage 0, with cancer in situ [Unknown]
  - Pain [Unknown]
  - Acute kidney injury [Recovered/Resolved]

NARRATIVE: CASE EVENT DATE: 2019
